FAERS Safety Report 21946194 (Version 1)
Quarter: 2023Q1

REPORT INFORMATION
  Report Type: Spontaneous
  Country: DE (occurrence: None)
  Receive Date: 20230202
  Receipt Date: 20230202
  Transmission Date: 20230417
  Serious: Yes (Other)
  Sender: FDA-Public Use
  Company Number: 2023A023839

PATIENT
  Age: 61 Year
  Sex: Female

DRUGS (5)
  1. OLAPARIB [Suspect]
     Active Substance: OLAPARIB
     Indication: Ovarian cancer
     Dosage: 9 TREATMENT CYCLES WITH OLAPARIB 150 MG 2-0-2
     Route: 048
     Dates: start: 20190226, end: 20191220
  2. ELIQUIS [Concomitant]
     Active Substance: APIXABAN
     Dosage: 5 MG 1-0-1 SINCE THE END OF OCTOBER 17TH
  3. CHOLECALCIFEROL [Concomitant]
     Active Substance: CHOLECALCIFEROL
     Dosage: VIGANTOLETTEN 100
  4. CINACALCET HYDROCHLORIDE [Concomitant]
     Active Substance: CINACALCET HYDROCHLORIDE
     Dosage: 30 MG 1-0-1
     Dates: start: 202105
  5. CINACALCET HYDROCHLORIDE [Concomitant]
     Active Substance: CINACALCET HYDROCHLORIDE
     Dosage: 1.5 TABLETS (45 MG)
     Dates: start: 202107

REACTIONS (4)
  - Hepatitis B [Unknown]
  - Hyperparathyroidism primary [Unknown]
  - Parathyroid tumour benign [Unknown]
  - Liver disorder [Unknown]

NARRATIVE: CASE EVENT DATE: 20200801
